FAERS Safety Report 12770248 (Version 1)
Quarter: 2016Q3

REPORT INFORMATION
  Report Type: Spontaneous
  Country: US (occurrence: US)
  Receive Date: 20160922
  Receipt Date: 20160922
  Transmission Date: 20161109
  Serious: No
  Sender: FDA-Public Use
  Company Number: US-ASTRAZENECA-2016SE87106

PATIENT
  Sex: Male

DRUGS (1)
  1. BRILINTA [Suspect]
     Active Substance: TICAGRELOR
     Indication: ACUTE CORONARY SYNDROME
     Dosage: MG, EVERY 12 HOURS
     Route: 048
     Dates: start: 2014

REACTIONS (4)
  - Communication disorder [Unknown]
  - Frustration tolerance decreased [Unknown]
  - Ill-defined disorder [Unknown]
  - Confusional state [Unknown]
